FAERS Safety Report 5067890-3 (Version None)
Quarter: 2006Q3

REPORT INFORMATION
  Report Type: 
  Country: None (occurrence: None)
  Receive Date: 20060714
  Receipt Date: 20050830
  Transmission Date: 20061208
  Serious: Yes (Other)
  Sender: FDA-Public Use
  Company Number: HQWYE232302SEP05

PATIENT
  Age: 17 Year
  Sex: Female

DRUGS (1)
  1. ADVIL [Suspect]
     Dosage: TWENTY-THREE TABLETS,  ORAL
     Route: 048
     Dates: start: 20050830, end: 20050830

REACTIONS (1)
  - INTENTIONAL OVERDOSE [None]
